FAERS Safety Report 7495219-X (Version None)
Quarter: 2011Q2

REPORT INFORMATION
  Report Type: 
  Country: None (occurrence: None)
  Receive Date: 20110522
  Receipt Date: 20110509
  Transmission Date: 20111010
  Serious: Yes (Hospitalization)
  Sender: FDA-Public Use
  Company Number: US-ELI_LILLY_AND_COMPANY-US201103003331

PATIENT
  Age: 58 Year
  Sex: Female
  Weight: 52.608 kg

DRUGS (1)
  1. FORTEO [Suspect]

REACTIONS (1)
  - INTERVERTEBRAL DISC DEGENERATION [None]
